FAERS Safety Report 10033264 (Version 1)
Quarter: 2014Q1

REPORT INFORMATION
  Report Type: Spontaneous
  Country: US (occurrence: US)
  Receive Date: 20140324
  Receipt Date: 20140324
  Transmission Date: 20141002
  Serious: Yes (Other)
  Sender: FDA-Public Use
  Company Number: US-RB-064804-14

PATIENT
  Age: 25 Year
  Sex: Female

DRUGS (7)
  1. SUBOXONE FILM [Suspect]
     Indication: DRUG DEPENDENCE
     Dosage: SUBOXONE FILM
     Route: 060
     Dates: start: 2011, end: 201105
  2. SUBOXONE FILM [Suspect]
     Dosage: SUBOXONE FILM; 2.5 STRIPS
     Route: 060
     Dates: start: 201109, end: 201110
  3. SUBOXONE FILM [Suspect]
     Route: 060
     Dates: start: 201110, end: 20140118
  4. SUBUTEX [Suspect]
     Indication: DRUG DEPENDENCE
     Route: 060
     Dates: start: 201105, end: 201109
  5. ALCOHOL [Suspect]
     Indication: PRODUCT USED FOR UNKNOWN INDICATION
     Dosage: 1 GLASS OF WINE WITH DINNER DURING PREGNANCY
     Route: 048
     Dates: start: 201012, end: 20110902
  6. NICOTINE [Concomitant]
     Indication: PRODUCT USED FOR UNKNOWN INDICATION
     Dosage: 10 CIGARETTES A DAY
     Route: 055
  7. PRENATAL VITAMINS [Concomitant]
     Indication: PRODUCT USED FOR UNKNOWN INDICATION
     Dosage: DOSING DETAILS UNKNOWN
     Route: 065
     Dates: start: 2011, end: 2012

REACTIONS (4)
  - Maternal exposure during pregnancy [Recovered/Resolved]
  - Alcohol abuse [Recovered/Resolved]
  - Postpartum haemorrhage [Recovered/Resolved]
  - Wrong technique in drug usage process [Recovered/Resolved]
